FAERS Safety Report 7961077-X (Version None)
Quarter: 2011Q4

REPORT INFORMATION
  Report Type: 
  Country: None (occurrence: None)
  Receive Date: 20111201
  Receipt Date: 20111201
  Transmission Date: 20120403
  Serious: Yes (Hospitalization, Disabling)
  Sender: FDA-Public Use
  Company Number: None

PATIENT
  Sex: Female
  Weight: 109.3169 kg

DRUGS (2)
  1. ACTOS [Suspect]
     Indication: TYPE 2 DIABETES MELLITUS
     Dosage: 45 MG ONCE A DAY ORAL
     Route: 048
     Dates: start: 20030101
  2. ROSIGLITAZONE MALEATE [Suspect]
     Indication: TYPE 2 DIABETES MELLITUS
     Dosage: 8 MG ONE HALF TABLET IN MORNING ONCE A DAY ORAL
     Route: 048

REACTIONS (11)
  - ANAEMIA [None]
  - FOOT FRACTURE [None]
  - BACK PAIN [None]
  - VOMITING [None]
  - WEIGHT INCREASED [None]
  - OEDEMA PERIPHERAL [None]
  - NAUSEA [None]
  - ABDOMINAL PAIN UPPER [None]
  - DECREASED APPETITE [None]
  - ARTHRITIS [None]
  - OEDEMA [None]
